FAERS Safety Report 6027579-0 (Version None)
Quarter: 2009Q1

REPORT INFORMATION
  Report Type: 
  Country: None (occurrence: None)
  Receive Date: 20090105
  Receipt Date: 20081125
  Transmission Date: 20090719
  Serious: No
  Sender: FDA-Public Use
  Company Number: US-BAYER-200814250BCC

PATIENT
  Age: 5 Year
  Sex: Female
  Weight: 20 kg

DRUGS (1)
  1. ALEVE (CAPLET) [Suspect]
     Indication: ACCIDENTAL OVERDOSE
     Route: 048
     Dates: start: 20081029

REACTIONS (3)
  - ABDOMINAL PAIN UPPER [None]
  - EATING DISORDER [None]
  - PSYCHOMOTOR HYPERACTIVITY [None]
